FAERS Safety Report 25571154 (Version 1)
Quarter: 2025Q3

REPORT INFORMATION
  Report Type: Spontaneous
  Country: US (occurrence: US)
  Receive Date: 20250717
  Receipt Date: 20250717
  Transmission Date: 20251021
  Serious: No
  Sender: ANI
  Company Number: US-ANIPHARMA-023572

PATIENT
  Age: 81 Year
  Sex: Female

DRUGS (1)
  1. SODIUM POLYSTYRENE SULFONATE [Suspect]
     Active Substance: SODIUM POLYSTYRENE SULFONATE
     Indication: Product used for unknown indication
     Route: 048

REACTIONS (7)
  - Poor quality product administered [Unknown]
  - Product solubility abnormal [Unknown]
  - Liquid product physical issue [Unknown]
  - Product taste abnormal [Unknown]
  - Nausea [Unknown]
  - Product substitution issue [Unknown]
  - Wrong technique in product usage process [Unknown]
